FAERS Safety Report 5936624-X (Version None)
Quarter: 2008Q4

REPORT INFORMATION
  Report Type: 
  Country: None (occurrence: None)
  Receive Date: 20081021
  Receipt Date: 20071005
  Transmission Date: 20090506
  Serious: Yes (Other)
  Sender: FDA-Public Use
  Company Number: HQWYE147615JUL04

PATIENT
  Age: 66 Year
  Sex: Female
  Weight: 62.65 kg

DRUGS (3)
  1. PREMARIN [Suspect]
     Indication: HORMONE REPLACEMENT THERAPY
  2. CYCRIN [Suspect]
     Indication: HORMONE REPLACEMENT THERAPY
  3. OGEN [Suspect]
     Indication: HORMONE REPLACEMENT THERAPY

REACTIONS (2)
  - BREAST CANCER [None]
  - BREAST DISCHARGE [None]
